FAERS Safety Report 16687580 (Version 2)
Quarter: 2019Q3

REPORT INFORMATION
  Report Type: Other
  Country: FR (occurrence: FR)
  Receive Date: 20190809
  Receipt Date: 20190916
  Transmission Date: 20191004
  Serious: Yes (Other)
  Sender: FDA-Public Use
  Company Number: FR-MACLEODS PHARMACEUTICALS US LTD-MAC2019022492

PATIENT

DRUGS (1)
  1. TENOFOVIR DISOPROXIL [Suspect]
     Active Substance: TENOFOVIR DISOPROXIL
     Indication: HEPATITIS B
     Dosage: UNK, 1 COURSE, EXPOSURE DURING SECOND TRIMESTER
     Route: 065
     Dates: start: 20111001, end: 20111222

REACTIONS (1)
  - Maternal exposure during pregnancy [Unknown]
